FAERS Safety Report 4362032-1 (Version None)
Quarter: 2004Q2

REPORT INFORMATION
  Report Type: 
  Country: None (occurrence: None)
  Receive Date: 20040521
  Receipt Date: 20040220
  Transmission Date: 20050107
  Serious: No
  Sender: FDA-Public Use
  Company Number: US-GLAXOSMITHKLINE-A0499202A

PATIENT

DRUGS (1)
  1. WELLBUTRIN XL [Suspect]
     Route: 048

REACTIONS (1)
  - DRUG INEFFECTIVE [None]
